FAERS Safety Report 7635826-4 (Version None)
Quarter: 2011Q3

REPORT INFORMATION
  Report Type: 
  Country: None (occurrence: None)
  Receive Date: 20110726
  Receipt Date: 20110715
  Transmission Date: 20111222
  Serious: Yes (Hospitalization)
  Sender: FDA-Public Use
  Company Number: FR-JNJFOC-20110707554

PATIENT
  Age: 22 Year
  Sex: Female

DRUGS (4)
  1. REMICADE [Suspect]
     Indication: CROHN'S DISEASE
     Route: 042
  2. REMICADE [Suspect]
     Route: 042
     Dates: start: 20101227, end: 20110118
  3. REMICADE [Suspect]
     Route: 042
     Dates: start: 20110128
  4. PREDNISOLONE [Concomitant]
     Indication: PREMEDICATION
     Route: 065

REACTIONS (4)
  - BRONCHOSPASM [None]
  - RASH [None]
  - INFUSION RELATED REACTION [None]
  - RESPIRATORY DISORDER [None]
